FAERS Safety Report 10445675 (Version 5)
Quarter: 2016Q4

REPORT INFORMATION
  Report Type: Spontaneous
  Country: US (occurrence: US)
  Receive Date: 20140908
  Receipt Date: 20161202
  Transmission Date: 20170206
  Serious: Yes (Hospitalization, Other)
  Sender: FDA-Public Use
  Company Number: US-PFIZER INC-2014249032

PATIENT
  Age: 93 Year
  Sex: Female
  Weight: 80.73 kg

DRUGS (17)
  1. LYRICA [Suspect]
     Active Substance: PREGABALIN
     Indication: NEURALGIA
     Dosage: 300 MG, DAILY (50 MG-AM, 100 MG-NOON, 150 MG QHS)
     Route: 048
  2. VITAMIN B COMPLEX [Concomitant]
     Active Substance: CYANOCOBALAMIN\DEXPANTHENOL\NIACINAMIDE\PYRIDOXINE HYDROCHLORIDE\RIBOFLAVIN 5^-PHOSPHATE SODIUM\THIAMINE HYDROCHLORIDE\VITAMIN B COMPLEX
     Dosage: 1 DF, DAILY
     Route: 048
     Dates: start: 20120315
  3. CALCIUM [Concomitant]
     Active Substance: CALCIUM
     Dosage: 500 MG, ONCE DAILY (TAKE 1)
     Route: 048
     Dates: start: 20120315
  4. ZANTAC [Concomitant]
     Active Substance: RANITIDINE HYDROCHLORIDE
     Dosage: 150 MG, 2X/DAY
     Route: 048
     Dates: start: 20151208
  5. LYRICA [Suspect]
     Active Substance: PREGABALIN
     Indication: NEUROPATHY PERIPHERAL
     Dosage: 300 MG DAILY, 50MG IN MORNING, 2 CAPSULES OF 50MG IN NOON AND 3 CAPSULES OF 50MG IN NIGHT)
     Route: 048
  6. PRAVACHOL [Concomitant]
     Active Substance: PRAVASTATIN SODIUM
     Dosage: 40 MG, DAILY (TAKE 1)
     Route: 048
     Dates: start: 20151208
  7. SYNTHROID [Concomitant]
     Active Substance: LEVOTHYROXINE SODIUM
     Dosage: 125 UG, DAILY (TAKE 1)
     Route: 048
     Dates: start: 20160202
  8. ELIQUIS [Concomitant]
     Active Substance: APIXABAN
     Dosage: 2.5 MG, 2X/DAY (TAKE 1)
     Route: 048
     Dates: start: 20160202
  9. LISINOPRIL. [Concomitant]
     Active Substance: LISINOPRIL
     Dosage: 2.5 MG, DAILY (TAKE 1)
     Route: 048
     Dates: start: 20151208
  10. METOPROLOL SUCCINATE. [Concomitant]
     Active Substance: METOPROLOL SUCCINATE
     Dosage: 50 MG, DAILY (TAKE 1)
     Route: 048
     Dates: start: 20160202
  11. ASA [Concomitant]
     Active Substance: ASPIRIN
     Dosage: UNK
  12. PLAVIX [Concomitant]
     Active Substance: CLOPIDOGREL BISULFATE
     Dosage: 75 MG, DAILY (TAKE 1 TABLET)
     Route: 048
     Dates: start: 20130731
  13. POTASSIUM CHLORIDE. [Concomitant]
     Active Substance: POTASSIUM CHLORIDE
     Dosage: 10 MEQ, 2X/DAY (TAKE 1 WITH FOOD)
     Route: 048
     Dates: start: 20151208
  14. NITROGLYCERIN. [Concomitant]
     Active Substance: NITROGLYCERIN
     Dosage: 0.4 MG/HR, APPLY 1 PATCH BY TRANSDERMAL ROUTE EVERY DAY REMOVE AT NIGHT FOR 10-12 HOURS
     Route: 062
     Dates: start: 20151208
  15. NORCO [Concomitant]
     Active Substance: ACETAMINOPHEN\HYDROCODONE BITARTRATE
     Dosage: Q DAY-BID PRN
  16. FUROSEMIDE. [Concomitant]
     Active Substance: FUROSEMIDE
     Dosage: 40 MG, DAILY (TAKE 1)
     Route: 048
     Dates: start: 20151208
  17. TRAMADOL /00599202/ [Concomitant]
     Active Substance: TRAMADOL
     Dosage: 50 MG, 3X/DAY
     Route: 048

REACTIONS (16)
  - Cardiac failure congestive [Unknown]
  - Condition aggravated [Recovering/Resolving]
  - Abdominal discomfort [Not Recovered/Not Resolved]
  - Feeling abnormal [Unknown]
  - Urinary tract infection [Unknown]
  - Condition aggravated [Unknown]
  - Cerebrovascular accident [Unknown]
  - Paraesthesia [Recovered/Resolved]
  - Condition aggravated [Recovered/Resolved]
  - Balance disorder [Unknown]
  - Blindness [Unknown]
  - Hypoaesthesia [Unknown]
  - Pain [Recovering/Resolving]
  - Withdrawal syndrome [Not Recovered/Not Resolved]
  - Mobility decreased [Unknown]
  - Burning sensation [Unknown]
